FAERS Safety Report 9418719 (Version 1)
Quarter: 2013Q3

REPORT INFORMATION
  Report Type: Other
  Country: US (occurrence: US)
  Receive Date: 20130725
  Receipt Date: 20130725
  Transmission Date: 20140515
  Serious: Yes (Other)
  Sender: FDA-Public Use
  Company Number: US-LUPIN PHARMACEUTICALS INC.-E2B_00001080

PATIENT
  Age: 52 Year
  Sex: Female
  Weight: 61.29 kg

DRUGS (2)
  1. CEPHALEXIN CAPSULES USP 500MG [Suspect]
     Indication: WOUND
     Dates: start: 20130707, end: 20130708
  2. CEPHALEXIN CAPSULES USP 500MG [Suspect]
     Indication: SINUSITIS

REACTIONS (10)
  - Sneezing [Recovered/Resolved]
  - Eye pruritus [Recovered/Resolved]
  - Rhinorrhoea [Recovered/Resolved]
  - Pruritus generalised [Recovered/Resolved]
  - Feeling hot [Recovered/Resolved]
  - Lip swelling [Recovered/Resolved]
  - Generalised erythema [Recovered/Resolved]
  - Urticaria [Recovered/Resolved]
  - Swelling [Recovered/Resolved]
  - Headache [Recovering/Resolving]
